FAERS Safety Report 13433799 (Version 2)
Quarter: 2017Q2

REPORT INFORMATION
  Report Type: Spontaneous
  Country: US (occurrence: US)
  Receive Date: 20170412
  Receipt Date: 20170523
  Transmission Date: 20170830
  Serious: Yes (Other)
  Sender: FDA-Public Use
  Company Number: US-BAYER-2017-065266

PATIENT
  Age: 63 Year
  Sex: Female

DRUGS (16)
  1. BETASERON [Suspect]
     Active Substance: INTERFERON BETA-1B
     Indication: MULTIPLE SCLEROSIS
     Dosage: 0.25 MG (1 ML), QOD
     Route: 058
     Dates: start: 1998
  2. NORTRIPTYLINE HCL [Concomitant]
     Active Substance: NORTRIPTYLINE HYDROCHLORIDE
  3. ACETAMINOPHEN. [Concomitant]
     Active Substance: ACETAMINOPHEN
  4. MIRALAX [Concomitant]
     Active Substance: POLYETHYLENE GLYCOL 3350
  5. GABAPENTIN. [Concomitant]
     Active Substance: GABAPENTIN
  6. HYDROCHLOROTHIAZIDE. [Concomitant]
     Active Substance: HYDROCHLOROTHIAZIDE
  7. RESTORIL [Concomitant]
     Active Substance: TEMAZEPAM
  8. LISINOPRIL. [Concomitant]
     Active Substance: LISINOPRIL
  9. BACLOFEN. [Concomitant]
     Active Substance: BACLOFEN
  10. CALCIUM [Concomitant]
     Active Substance: CALCIUM
  11. IBUPROFEN. [Concomitant]
     Active Substance: IBUPROFEN
  12. MODAFINIL. [Concomitant]
     Active Substance: MODAFINIL
  13. VITAMIN D3 [Concomitant]
     Active Substance: CHOLECALCIFEROL
  14. DULOXETINE. [Concomitant]
     Active Substance: DULOXETINE
  15. FISH OIL [Concomitant]
     Active Substance: FISH OIL
  16. MULTIVITAMIN [Concomitant]
     Active Substance: VITAMINS

REACTIONS (6)
  - Paraesthesia [Not Recovered/Not Resolved]
  - Burning sensation [Not Recovered/Not Resolved]
  - Migraine [Not Recovered/Not Resolved]
  - Neuropathy peripheral [Not Recovered/Not Resolved]
  - Multiple sclerosis relapse [Not Recovered/Not Resolved]
  - Hypoaesthesia [Not Recovered/Not Resolved]

NARRATIVE: CASE EVENT DATE: 2017
